FAERS Safety Report 23813854 (Version 1)
Quarter: 2024Q2

REPORT INFORMATION
  Report Type: Spontaneous
  Country: IT (occurrence: IT)
  Receive Date: 20240503
  Receipt Date: 20240503
  Transmission Date: 20240715
  Serious: Yes (Other)
  Sender: FDA-Public Use
  Company Number: IT-ELI_LILLY_AND_COMPANY-IT202402008162

PATIENT
  Age: 76 Year
  Sex: Male

DRUGS (7)
  1. DULOXETINE [Suspect]
     Active Substance: DULOXETINE
     Indication: Prostate cancer
     Dosage: 60 MILLIGRAM, ONCE A DAY  (1 TABLET AT 8 PM)
     Route: 065
     Dates: start: 20230801
  2. LANSOPRAZOLE [Concomitant]
     Active Substance: LANSOPRAZOLE
     Indication: Product used for unknown indication
     Dosage: 30 MILLIGRAM, ONCE A DAY (1 TABLET 8 AM)
     Route: 065
  3. LEVOTHYROXINE SODIUM [Concomitant]
     Active Substance: LEVOTHYROXINE SODIUM
     Indication: Product used for unknown indication
     Dosage: 75 MILLIGRAM, ONCE A DAY (1 TABLET ODD DAYS)
     Route: 065
  4. LEVOTHYROXINE SODIUM [Concomitant]
     Active Substance: LEVOTHYROXINE SODIUM
     Dosage: 50 MILLIGRAM, ONCE A DAY (1 TABLET EVEN DAYS)
     Route: 065
  5. LASIX [Concomitant]
     Active Substance: FUROSEMIDE
     Indication: Product used for unknown indication
     Dosage: 25 MILLIGRAM, ONCE A DAY ( 1/2 TABLET 8 AM)
     Route: 065
  6. LORAZEPAM [Concomitant]
     Active Substance: LORAZEPAM
     Indication: Product used for unknown indication
     Dosage: 1 MILLIGRAM, ONCE A DAY (1 TABLET IN THE EVENING)
     Route: 065
  7. BISOPROLOL [Concomitant]
     Active Substance: BISOPROLOL\BISOPROLOL FUMARATE
     Indication: Product used for unknown indication
     Dosage: 1.25 MILLIGRAM, ONCE A DAY (1 TABLET IN THE EVENING)
     Route: 065

REACTIONS (5)
  - Pleural mesothelioma malignant [Unknown]
  - Autoimmune thyroiditis [Unknown]
  - Pleural effusion [Unknown]
  - Pyrexia [Unknown]
  - Off label use [Unknown]
